FAERS Safety Report 4661422-7 (Version None)
Quarter: 2005Q2

REPORT INFORMATION
  Report Type: 
  Country: None (occurrence: None)
  Receive Date: 20050513
  Receipt Date: 20050505
  Transmission Date: 20051028
  Serious: Yes (Other)
  Sender: FDA-Public Use
  Company Number: CA-GLAXOSMITHKLINE-A0558000A

PATIENT
  Age: 33 Year
  Sex: Female

DRUGS (7)
  1. IMITREX [Suspect]
     Indication: DRUG USE FOR UNKNOWN INDICATION
  2. SERTRALINE HCL [Suspect]
     Indication: DRUG USE FOR UNKNOWN INDICATION
     Route: 065
  3. BENYLIN-E [Suspect]
     Indication: DRUG USE FOR UNKNOWN INDICATION
     Route: 065
  4. GRAVOL TAB [Concomitant]
     Route: 065
  5. IMOVANE [Concomitant]
     Route: 065
  6. RISPERDAL [Concomitant]
     Route: 065
  7. TYLENOL (CAPLET) [Concomitant]
     Route: 065

REACTIONS (4)
  - FEELING HOT [None]
  - HYPERHIDROSIS [None]
  - SUICIDE ATTEMPT [None]
  - TREMOR [None]
